FAERS Safety Report 5283683-6 (Version None)
Quarter: 2007Q2

REPORT INFORMATION
  Report Type: 
  Country: None (occurrence: None)
  Receive Date: 20070402
  Receipt Date: 20070321
  Transmission Date: 20071010
  Serious: Yes (Hospitalization)
  Sender: FDA-Public Use
  Company Number: US-ROCHE-481538

PATIENT
  Age: 65 Year
  Sex: Male
  Weight: 100.7 kg

DRUGS (11)
  1. CAPECITABINE [Suspect]
     Dosage: 850 MG/M2 TAKEN TWICE-DAILY, DAYS 1-15 (FIRST DOSE IN THE EVENING OF DAY 1) OF 21 DAY CYCLE AS PER +
     Route: 048
     Dates: start: 20061227, end: 20070305
  2. CAPECITABINE [Suspect]
     Dosage: DOSE REDUCTION. GIVEN DAYS 1-15 (FIRST DOSE IN THE EVENING OF DAY 1) OF 21 DAY CYCLE AS PER PROTOCO+
     Route: 048
     Dates: start: 20070305, end: 20070321
  3. BEVACIZUMAB [Suspect]
     Dosage: 7.5 MG/KG GIVEN ON DAY ONE EVERY THREE WEEKS, AS PER PROTOCOL. PATIENT WITHDRAWN FROM THE STUDY ON +
     Route: 042
     Dates: start: 20061227, end: 20070305
  4. OXALIPLATIN [Suspect]
     Dosage: 130 MG/M2 VIA 2-HOUR IV INFUSION WILL BE ADMINISTERED ON DAY 1 EVERY 3 WEEKS AS PER PROTOCOL.
     Route: 042
     Dates: start: 20061227, end: 20070321
  5. ZOCOR [Concomitant]
  6. ATIVAN [Concomitant]
  7. ASCORBIC ACID [Concomitant]
  8. ALLOPURINOL [Concomitant]
  9. NEXIUM [Concomitant]
  10. LEXAPRO [Concomitant]
  11. ENALAPRIL MALEATE [Concomitant]

REACTIONS (3)
  - GASTROENTERITIS [None]
  - RENAL FAILURE ACUTE [None]
  - SMALL INTESTINAL OBSTRUCTION [None]
